FAERS Safety Report 11458961 (Version 1)
Quarter: 2015Q3

REPORT INFORMATION
  Report Type: Spontaneous
  Country: US (occurrence: None)
  Receive Date: 20150903
  Receipt Date: 20150903
  Transmission Date: 20151125
  Serious: No
  Sender: FDA-Public Use
  Company Number: None

PATIENT
  Age: 68 Year
  Sex: Male
  Weight: 100.7 kg

DRUGS (1)
  1. ENOXAPRIN SODIUM [Suspect]
     Active Substance: ENOXAPARIN SODIUM
     Indication: ATRIAL FIBRILLATION
     Dates: start: 20150729

REACTIONS (3)
  - Injection site pain [None]
  - Needle issue [None]
  - Condition aggravated [None]

NARRATIVE: CASE EVENT DATE: 20150807
